FAERS Safety Report 19185789 (Version 1)
Quarter: 2021Q2

REPORT INFORMATION
  Report Type: Spontaneous
  Country: GR (occurrence: GR)
  Receive Date: 20210427
  Receipt Date: 20210427
  Transmission Date: 20210717
  Serious: Yes (Hospitalization)
  Sender: FDA-Public Use
  Company Number: GR-NOVOPROD-805318

PATIENT
  Sex: Male
  Weight: 2.1 kg

DRUGS (1)
  1. LEVEMIR [Suspect]
     Active Substance: INSULIN DETEMIR
     Indication: GESTATIONAL DIABETES
     Dosage: 8 IU, QD
     Route: 064
     Dates: start: 20200905

REACTIONS (4)
  - Infantile apnoea [Recovered/Resolved]
  - Foetal exposure during pregnancy [Recovered/Resolved]
  - Underweight [Recovered/Resolved]
  - Premature baby [Recovered/Resolved]

NARRATIVE: CASE EVENT DATE: 20210103
